FAERS Safety Report 8983764 (Version 2)
Quarter: 2013Q1

REPORT INFORMATION
  Report Type: Spontaneous
  Country: CA (occurrence: CA)
  Receive Date: 20121224
  Receipt Date: 20130112
  Transmission Date: 20140127
  Serious: Yes (Hospitalization)
  Sender: FDA-Public Use
  Company Number: CA-AMGEN-CANSP2012082095

PATIENT
  Age: 67 Year
  Sex: Female

DRUGS (4)
  1. XGEVA [Suspect]
     Indication: BREAST CANCER
     Dosage: UNK
     Dates: start: 20120918
  2. ANTINEOPLASTIC AGENTS [Concomitant]
  3. MORPHINE [Concomitant]
     Dosage: UNK
     Dates: start: 201211
  4. CIPROFLOXACIN                      /00697202/ [Concomitant]
     Dosage: 500 MG, UNK

REACTIONS (1)
  - Thrombosis [Recovering/Resolving]
